FAERS Safety Report 6867682-6 (Version None)
Quarter: 2010Q3

REPORT INFORMATION
  Report Type: 
  Country: None (occurrence: None)
  Receive Date: 20100722
  Receipt Date: 20100331
  Transmission Date: 20110219
  Serious: No
  Sender: FDA-Public Use
  Company Number: US-BAUSCH-2010BL001766

PATIENT
  Age: 34 Year
  Sex: Female

DRUGS (4)
  1. OPCON-A [Suspect]
     Indication: FOREIGN BODY IN EYE
     Route: 047
     Dates: start: 20100331, end: 20100331
  2. OPCON-A [Suspect]
     Indication: OFF LABEL USE
     Route: 047
     Dates: start: 20100331, end: 20100331
  3. ONE A DAY ESSENTIAL /USA/ [Concomitant]
  4. FISH OIL [Concomitant]

REACTIONS (3)
  - INCORRECT DOSE ADMINISTERED [None]
  - MYDRIASIS [None]
  - VISION BLURRED [None]
